FAERS Safety Report 4863324-X (Version None)
Quarter: 2005Q4

REPORT INFORMATION
  Report Type: 
  Country: None (occurrence: None)
  Receive Date: 20051219
  Receipt Date: 20051202
  Transmission Date: 20060501
  Serious: Yes (Life-Threatening, Disabling)
  Sender: FDA-Public Use
  Company Number: 2005BL007203

PATIENT
  Age: 75 Year
  Sex: Male

DRUGS (1)
  1. CARTEOLOL HCL [Suspect]
     Indication: INTRAOCULAR PRESSURE TEST
     Dosage: 1 DROP; TWICE A DAY; OPTHALMIC
     Route: 047
     Dates: start: 19850101, end: 20050201

REACTIONS (5)
  - BRADYCARDIA [None]
  - CARDIAC PACEMAKER INSERTION [None]
  - CEREBROVASCULAR ACCIDENT [None]
  - HEMIPLEGIA [None]
  - INTERMITTENT CLAUDICATION [None]
